FAERS Safety Report 8053589-8 (Version None)
Quarter: 2012Q1

REPORT INFORMATION
  Report Type: 
  Country: None (occurrence: None)
  Receive Date: 20120118
  Receipt Date: 20120111
  Transmission Date: 20120608
  Serious: Yes (Hospitalization)
  Sender: FDA-Public Use
  Company Number: BR-MERCK-1201BRA00047

PATIENT

DRUGS (2)
  1. ZETIA [Suspect]
     Indication: BLOOD CHOLESTEROL
     Route: 048
  2. COLCHICINE [Concomitant]
     Indication: GOUT
     Route: 048

REACTIONS (2)
  - HYPERTENSIVE CRISIS [None]
  - GOUT [None]
